FAERS Safety Report 8896344 (Version 1)
Quarter: 2012Q4

REPORT INFORMATION
  Report Type: Spontaneous
  Country: US (occurrence: None)
  Receive Date: 20121101
  Receipt Date: 20121101
  Transmission Date: 20130627
  Serious: Yes (Other)
  Sender: FDA-Public Use
  Company Number: None

PATIENT
  Age: 65 Year
  Sex: Female
  Weight: 75.75 kg

DRUGS (3)
  1. CAMPHOR (NATURAL)\MENTHOL\METHYL SALICYLATE. [Suspect]
     Indication: MUSCLE DISORDER
     Dosage: rub on skin
     Dates: start: 20120330, end: 20120401
  2. CAMPHOR (NATURAL)\MENTHOL\METHYL SALICYLATE. [Suspect]
     Indication: PAIN MANAGEMENT
     Dosage: rub on skin
     Dates: start: 20120330, end: 20120401
  3. TOREISEL -TEMSIROLIMUS- [Concomitant]

REACTIONS (1)
  - Burns second degree [None]
